FAERS Safety Report 18826734 (Version 1)
Quarter: 2021Q1

REPORT INFORMATION
  Report Type: Spontaneous
  Country: US (occurrence: US)
  Receive Date: 20210201
  Receipt Date: 20210201
  Transmission Date: 20210419
  Serious: Yes (Other)
  Sender: FDA-Public Use
  Company Number: US-ABBVIE-20K-163-3430422-00

PATIENT
  Sex: Female
  Weight: 74.84 kg

DRUGS (3)
  1. CHANTIX [Suspect]
     Active Substance: VARENICLINE TARTRATE
     Indication: EX-TOBACCO USER
     Route: 065
  2. HUMIRA [Suspect]
     Active Substance: ADALIMUMAB
     Indication: RHEUMATOID ARTHRITIS
     Route: 058
     Dates: start: 2007, end: 2009
  3. CHANTIX [Suspect]
     Active Substance: VARENICLINE TARTRATE
     Route: 065

REACTIONS (7)
  - Lung disorder [Unknown]
  - Unevaluable event [Unknown]
  - Pulmonary mass [Unknown]
  - Mental disorder [Not Recovered/Not Resolved]
  - Stress [Unknown]
  - Tobacco user [Not Recovered/Not Resolved]
  - Cervix carcinoma [Unknown]

NARRATIVE: CASE EVENT DATE: 2009
